FAERS Safety Report 9927848 (Version 3)
Quarter: 2014Q2

REPORT INFORMATION
  Report Type: Report from Study
  Country: CA (occurrence: CA)
  Receive Date: 20140227
  Receipt Date: 20140620
  Transmission Date: 20141212
  Serious: No
  Sender: FDA-Public Use
  Company Number: CA-JNJFOC-20140110414

PATIENT
  Age: 68 Year
  Sex: Male

DRUGS (3)
  1. STELARA [Suspect]
     Indication: PSORIASIS
     Route: 058
     Dates: start: 20130321
  2. STELARA [Suspect]
     Indication: PSORIASIS
     Route: 058
     Dates: start: 20040701
  3. STELARA [Suspect]
     Indication: PSORIASIS
     Route: 058
     Dates: start: 20130916, end: 20131213

REACTIONS (1)
  - Basal cell carcinoma [Unknown]
